FAERS Safety Report 6825324-X (Version None)
Quarter: 2010Q3

REPORT INFORMATION
  Report Type: 
  Country: None (occurrence: None)
  Receive Date: 20100708
  Receipt Date: 20061120
  Transmission Date: 20110219
  Serious: No
  Sender: FDA-Public Use
  Company Number: US-PFIZER INC-2006147471

PATIENT
  Sex: Male
  Weight: 95.25 kg

DRUGS (7)
  1. CHANTIX [Suspect]
     Dates: start: 20061114
  2. PLAVIX [Concomitant]
  3. LIPITOR [Concomitant]
  4. ACCUPRIL [Concomitant]
  5. ACETYLSALICYLIC ACID [Concomitant]
  6. POTASSIUM CHLORIDE [Concomitant]
  7. METOPROLOL [Concomitant]
     Indication: HYPERTENSION

REACTIONS (1)
  - MIDDLE INSOMNIA [None]
